FAERS Safety Report 19288001 (Version 4)
Quarter: 2021Q3

REPORT INFORMATION
  Report Type: Report from Study
  Country: CA (occurrence: CA)
  Receive Date: 20210521
  Receipt Date: 20210708
  Transmission Date: 20211014
  Serious: Yes (Death, Hospitalization, Other)
  Sender: FDA-Public Use
  Company Number: CA-IPSEN BIOPHARMACEUTICALS, INC.-2020-09390

PATIENT
  Age: 65 Year
  Sex: Female
  Weight: 99.3 kg

DRUGS (10)
  1. SOMATULINE AUTOGEL [Suspect]
     Active Substance: LANREOTIDE ACETATE
     Route: 058
     Dates: start: 2021, end: 20210621
  2. LASIX [Concomitant]
     Active Substance: FUROSEMIDE
     Indication: PRODUCT USED FOR UNKNOWN INDICATION
     Dosage: 20?40 MG DAILY;
  3. SOMATULINE AUTOGEL [Suspect]
     Active Substance: LANREOTIDE ACETATE
     Dosage: 180 MG Q2W
     Route: 058
     Dates: start: 20210118, end: 2021
  4. LASIX [Concomitant]
     Active Substance: FUROSEMIDE
     Dosage: LASIX WAS INCREASED TO 60MG PO DAILY
  5. JANUMET XR [Concomitant]
     Active Substance: METFORMIN HYDROCHLORIDE\SITAGLIPTIN PHOSPHATE
     Indication: TYPE 2 DIABETES MELLITUS
     Dosage: ONE TAB DAILY
  6. SOMATULINE AUTOGEL [Suspect]
     Active Substance: LANREOTIDE ACETATE
     Indication: NEUROENDOCRINE CARCINOMA METASTATIC
     Dosage: 120 MG EVERY 4 WEEKS
     Route: 058
     Dates: start: 20200522, end: 2020
  7. OCTREOTIDE ACETATE OMEGA [Concomitant]
     Indication: NEUROENDOCRINE TUMOUR
     Dosage: TID (THRICE A DAY)
     Route: 058
  8. SOMATULINE AUTOGEL [Suspect]
     Active Substance: LANREOTIDE ACETATE
     Dosage: 120 MG EVERY 14 DAYS
     Route: 058
     Dates: start: 2020, end: 2021
  9. HYDROMORPHONE [Suspect]
     Active Substance: HYDROMORPHONE
     Indication: PAIN
     Dosage: AS NEEDED (POST EMBOLISATION)
     Route: 065
     Dates: start: 20200812
  10. ASA [Concomitant]
     Active Substance: ASPIRIN
     Indication: PRODUCT USED FOR UNKNOWN INDICATION
     Dosage: 81 MG DAILY

REACTIONS (72)
  - Death [Fatal]
  - Procedural nausea [Recovering/Resolving]
  - Asthenia [Not Recovered/Not Resolved]
  - Therapeutic embolisation [Unknown]
  - Pleural effusion [Not Recovered/Not Resolved]
  - Complex regional pain syndrome [Not Recovered/Not Resolved]
  - Fall [Recovering/Resolving]
  - Contusion [Not Recovered/Not Resolved]
  - Dry mouth [Not Recovered/Not Resolved]
  - Terminal state [Unknown]
  - Malignant peritoneal neoplasm [Unknown]
  - Contusion [Not Recovered/Not Resolved]
  - Constipation [Recovered/Resolved]
  - Eye contusion [Not Recovered/Not Resolved]
  - Flatulence [Unknown]
  - Hypertension [Recovering/Resolving]
  - Weight decreased [Unknown]
  - Nausea [Not Recovered/Not Resolved]
  - Cellulitis [Recovering/Resolving]
  - Localised oedema [Not Recovered/Not Resolved]
  - Malignant neoplasm progression [Not Recovered/Not Resolved]
  - Faecal vomiting [Recovered/Resolved]
  - Flushing [Recovered/Resolved]
  - Flushing [Recovered/Resolved]
  - Flatulence [Not Recovered/Not Resolved]
  - Nausea [Recovered/Resolved]
  - Abdominal pain upper [Recovering/Resolving]
  - Chest pain [Not Recovered/Not Resolved]
  - Erythema [Recovering/Resolving]
  - Pain in extremity [Not Recovered/Not Resolved]
  - Finger deformity [Not Recovered/Not Resolved]
  - Gait disturbance [Not Recovered/Not Resolved]
  - Procedural pain [Not Recovered/Not Resolved]
  - Injection site mass [Not Recovered/Not Resolved]
  - Blood pressure decreased [Recovered/Resolved]
  - Fall [Recovered/Resolved with Sequelae]
  - Eating disorder [Not Recovered/Not Resolved]
  - Renal artery thrombosis [Unknown]
  - Carcinoid syndrome [Not Recovered/Not Resolved]
  - Nausea [Recovered/Resolved]
  - Abdominal pain [Recovered/Resolved]
  - Constipation [Recovered/Resolved]
  - Eructation [Unknown]
  - Fracture [Not Recovered/Not Resolved]
  - Eye movement disorder [Unknown]
  - Off label use [Unknown]
  - Product lot number issue [Unknown]
  - Syncope [Recovered/Resolved]
  - Therapeutic embolisation [Unknown]
  - Injection site pain [Recovered/Resolved]
  - Faeces hard [Unknown]
  - Faeces discoloured [Unknown]
  - Muscular weakness [Not Recovered/Not Resolved]
  - Procedural vomiting [Recovering/Resolving]
  - Weight increased [Not Recovered/Not Resolved]
  - Renal failure [Not Recovered/Not Resolved]
  - Pseudostroke [Unknown]
  - Tooth disorder [Unknown]
  - Abdominal pain [Recovered/Resolved]
  - Hypotension [Recovering/Resolving]
  - Joint swelling [Unknown]
  - Oedema peripheral [Not Recovered/Not Resolved]
  - Decreased appetite [Recovering/Resolving]
  - Renal cancer [Not Recovered/Not Resolved]
  - Intestinal obstruction [Unknown]
  - Ascites [Not Recovered/Not Resolved]
  - Vomiting [Recovered/Resolved]
  - Injection site pruritus [Recovering/Resolving]
  - Constipation [Not Recovered/Not Resolved]
  - Flushing [Recovering/Resolving]
  - Unresponsive to stimuli [Unknown]
  - Off label use [Unknown]

NARRATIVE: CASE EVENT DATE: 2020
